FAERS Safety Report 19460417 (Version 3)
Quarter: 2022Q2

REPORT INFORMATION
  Report Type: Spontaneous
  Country: US (occurrence: US)
  Receive Date: 20210625
  Receipt Date: 20220420
  Transmission Date: 20220721
  Serious: Yes (Other)
  Sender: FDA-Public Use
  Company Number: US-MLMSERVICE-20210607-2934712-1

PATIENT
  Age: 69 Year
  Sex: Male

DRUGS (20)
  1. GABAPENTIN [Suspect]
     Active Substance: GABAPENTIN
     Indication: Bipolar disorder
     Dosage: 3200 MILLIGRAM, QD (BEDTIME) (STOP DATE: NOV-2016)
     Route: 065
  2. GABAPENTIN [Suspect]
     Active Substance: GABAPENTIN
     Dosage: 800 MILLIGRAM, QD (MORNING)
     Route: 065
     Dates: end: 201808
  3. GABAPENTIN [Suspect]
     Active Substance: GABAPENTIN
     Dosage: 1600 MILLIGRAM, QD (BEDTIME)
     Route: 065
     Dates: end: 201808
  4. QUETIAPINE FUMARATE [Suspect]
     Active Substance: QUETIAPINE FUMARATE
     Indication: Bipolar disorder
     Dosage: UNK (STOP DATE: JAN-2017)
     Route: 065
     Dates: start: 201612
  5. TEMAZEPAM [Suspect]
     Active Substance: TEMAZEPAM
     Indication: Insomnia
     Dosage: UNK, PRN (15 TO 30 MG AS NEEDED) (STOP DATE: NOV-2016)
     Route: 065
  6. LORAZEPAM [Suspect]
     Active Substance: LORAZEPAM
     Indication: Restless legs syndrome
     Dosage: UNK
     Route: 065
  7. OLANZAPINE [Suspect]
     Active Substance: OLANZAPINE
     Indication: Bipolar disorder
     Dosage: UNK (STOP DATE: JAN-2017)
     Route: 065
     Dates: start: 201612
  8. PRAMIPEXOLE [Concomitant]
     Active Substance: PRAMIPEXOLE
     Indication: Bipolar disorder
     Dosage: 375 MICROGRAM, QD (STOP DATE: JUL-2017)
     Route: 065
  9. LAMOTRIGINE [Concomitant]
     Active Substance: LAMOTRIGINE
     Indication: Bipolar disorder
     Dosage: 200 MICROGRAM, QD
     Route: 065
     Dates: end: 201802
  10. LAMOTRIGINE [Concomitant]
     Active Substance: LAMOTRIGINE
     Dosage: 150 MICROGRAM, QD (AM)
     Route: 065
     Dates: start: 201701
  11. LAMOTRIGINE [Concomitant]
     Active Substance: LAMOTRIGINE
     Dosage: 200 MICROGRAM, QD (PM)
     Route: 065
     Dates: start: 201803
  12. LAMOTRIGINE [Concomitant]
     Active Substance: LAMOTRIGINE
     Dosage: 100 MICROGRAM, QD (AM)
     Route: 065
     Dates: start: 201803
  13. ROPINIROLE [Concomitant]
     Active Substance: ROPINIROLE
     Indication: Bipolar disorder
     Dosage: 6 MILLIGRAM, QD, BEDTIME (START DATE: JUL-2017)
     Route: 065
  14. ROPINIROLE [Concomitant]
     Active Substance: ROPINIROLE
     Dosage: UNK (START DATE: JUL-2017)
     Route: 065
  15. ROPINIROLE [Concomitant]
     Active Substance: ROPINIROLE
     Dosage: 0.5 MILLIGRAM, QD (START DATE: JUL-2017)
     Route: 065
  16. CARBIDOPA\LEVODOPA [Concomitant]
     Active Substance: CARBIDOPA\LEVODOPA
     Indication: Bipolar disorder
     Dosage: 1 DOSAGE FORM, 6 HOURS
     Route: 065
     Dates: start: 201806, end: 201903
  17. CARBIDOPA\LEVODOPA [Concomitant]
     Active Substance: CARBIDOPA\LEVODOPA
     Dosage: 1 DOSAGE FORM, 12 HOURS
     Route: 065
     Dates: start: 201803, end: 202105
  18. DIVALPROEX SODIUM [Concomitant]
     Active Substance: DIVALPROEX SODIUM
     Indication: Product used for unknown indication
     Dosage: 1500 MILLIGRAM, QD, AT BEDTIME
     Route: 065
     Dates: start: 201701, end: 201802
  19. DIVALPROEX SODIUM [Concomitant]
     Active Substance: DIVALPROEX SODIUM
     Dosage: 1000 MILLIGRAM, QD, AT BEDTIME
     Route: 065
     Dates: start: 201803
  20. CODEINE [Concomitant]
     Active Substance: CODEINE
     Indication: Product used for unknown indication
     Dosage: UNK
     Route: 065

REACTIONS (7)
  - Intentional product misuse [Unknown]
  - Self-medication [Unknown]
  - Restless legs syndrome [Recovering/Resolving]
  - Condition aggravated [Recovering/Resolving]
  - Drug ineffective for unapproved indication [Unknown]
  - Oedema peripheral [Unknown]
  - Off label use [Unknown]

NARRATIVE: CASE EVENT DATE: 20170101
